FAERS Safety Report 8643364 (Version 2)
Quarter: 2012Q4

REPORT INFORMATION
  Report Type: 
  Country: SE (occurrence: SE)
  Receive Date: 20120629
  Receipt Date: 20120927
  Transmission Date: 20130627
  Serious: Yes (Hospitalization, Other)
  Sender: FDA-Public Use
  Company Number: SE-JNJFOC-20120613750

PATIENT
  Age: 58 Year
  Sex: Male

DRUGS (8)
  1. PALEXIA [Suspect]
     Indication: PAIN
     Route: 048
  2. PALEXIA [Suspect]
     Indication: PAIN
     Route: 048
     Dates: start: 20120110, end: 20120507
  3. TRAMADOL HYDROCHLORIDE [Suspect]
     Indication: PRODUCT USED FOR UNKNOWN INDICATION
     Dosage: 100 mg or 150 mg
     Route: 048
  4. GABAPENTIN [Suspect]
     Indication: PAIN
     Dosage: 3,6mg
     Route: 065
     Dates: start: 20081113
  5. GABAPENTIN [Suspect]
     Indication: PAIN
     Route: 065
     Dates: start: 20111113, end: 20120507
  6. FENTANYL [Concomitant]
     Route: 062
  7. MECLOZINE [Concomitant]
     Route: 065
  8. TRYPTIZOL [Concomitant]
     Route: 065

REACTIONS (6)
  - Serotonin syndrome [Recovered/Resolved]
  - Amnesia [Unknown]
  - Nausea [Unknown]
  - Dyspnoea [Unknown]
  - Disorientation [Unknown]
  - Fatigue [Unknown]
